FAERS Safety Report 24621008 (Version 3)
Quarter: 2025Q3

REPORT INFORMATION
  Report Type: Spontaneous
  Country: JP (occurrence: None)
  Receive Date: 20241114
  Receipt Date: 20250804
  Transmission Date: 20251020
  Serious: Yes (Hospitalization)
  Sender: ALEXION PHARMACEUTICALS
  Company Number: JP-ASTRAZENECA-240112231_063010_P_1

PATIENT
  Age: 93 Year
  Sex: Male

DRUGS (17)
  1. DAPAGLIFLOZIN [Suspect]
     Active Substance: DAPAGLIFLOZIN
     Indication: Diabetes mellitus
     Dosage: 5 MILLIGRAM, QD
     Dates: start: 20240216, end: 2024
  2. DAPAGLIFLOZIN [Suspect]
     Active Substance: DAPAGLIFLOZIN
     Dates: start: 20240216, end: 2024
  3. PREDONINE [Concomitant]
     Active Substance: PREDNISOLONE
  4. LINAGLIPTIN [Concomitant]
     Active Substance: LINAGLIPTIN
  5. ASPIRIN [Concomitant]
     Active Substance: ASPIRIN
  6. AMLODIPINE [Concomitant]
     Active Substance: AMLODIPINE BESYLATE
  7. PERINDOPRIL ERBUMINE [Concomitant]
     Active Substance: PERINDOPRIL ERBUMINE
  8. FUROSEMIDE [Concomitant]
     Active Substance: FUROSEMIDE
  9. CILOSTAZOL [Concomitant]
     Active Substance: CILOSTAZOL
  10. RABEPRAZOLE SODIUM [Concomitant]
     Active Substance: RABEPRAZOLE SODIUM
  11. RISEDRONATE SODIUM [Concomitant]
     Active Substance: RISEDRONATE SODIUM
  12. DAYVIGO [Concomitant]
     Active Substance: LEMBOREXANT
  13. INSULIN LISPRO [Concomitant]
     Active Substance: INSULIN LISPRO
  14. KETOPROFEN [Concomitant]
     Active Substance: KETOPROFEN
  15. CILOSTAZOL [Concomitant]
     Active Substance: CILOSTAZOL
  16. RABEPRAZOLE SODIUM [Concomitant]
     Active Substance: RABEPRAZOLE SODIUM
  17. HUMALOG [Concomitant]
     Active Substance: INSULIN LISPRO

REACTIONS (2)
  - Urinary tract infection [Recovered/Resolved]
  - Dyspnoea [Unknown]

NARRATIVE: CASE EVENT DATE: 20240101
